FAERS Safety Report 13405210 (Version 1)
Quarter: 2017Q2

REPORT INFORMATION
  Report Type: Spontaneous
  Country: US (occurrence: US)
  Receive Date: 20170405
  Receipt Date: 20170405
  Transmission Date: 20170830
  Serious: Yes (Other)
  Sender: FDA-Public Use
  Company Number: None

PATIENT
  Age: 64 Year
  Sex: Male
  Weight: 80.81 kg

DRUGS (4)
  1. LEVAQUIN [Suspect]
     Active Substance: LEVOFLOXACIN
     Indication: SINUSITIS
     Dosage: ?          QUANTITY:/ ^FIZZFIB/;?
     Route: 048
     Dates: start: 20170301, end: 20170307
  2. WAFARIN [Concomitant]
     Active Substance: WARFARIN
  3. SYNTHROID [Concomitant]
     Active Substance: LEVOTHYROXINE SODIUM
  4. MULTIVITAMIN (1 A DAY) [Concomitant]

REACTIONS (4)
  - Gait disturbance [None]
  - Sensory loss [None]
  - Dysstasia [None]
  - Hypoaesthesia [None]

NARRATIVE: CASE EVENT DATE: 20170303
